FAERS Safety Report 20183024 (Version 1)
Quarter: 2021Q4

REPORT INFORMATION
  Report Type: Spontaneous
  Country: TW (occurrence: TW)
  Receive Date: 20211214
  Receipt Date: 20211214
  Transmission Date: 20220303
  Serious: Yes (Death, Other)
  Sender: FDA-Public Use
  Company Number: TW-ASTELLAS-2021US047717

PATIENT
  Age: 57 Year
  Sex: Female

DRUGS (7)
  1. ZOLPIDEM TARTRATE [Suspect]
     Active Substance: ZOLPIDEM TARTRATE
     Indication: Persistent depressive disorder
     Dosage: UNK, UNKNOWN FREQ.
     Route: 065
  2. FLUNITRAZEPAM [Suspect]
     Active Substance: FLUNITRAZEPAM
     Indication: Persistent depressive disorder
     Dosage: UNK UNK, UNKNOWN FREQ.
     Route: 065
  3. AGOMELATINE [Suspect]
     Active Substance: AGOMELATINE
     Indication: Persistent depressive disorder
     Dosage: UNK UNK, UNKNOWN FREQ.
     Route: 065
  4. CLOZAPINE [Suspect]
     Active Substance: CLOZAPINE
     Indication: Persistent depressive disorder
     Dosage: UNK UNK, UNKNOWN FREQ.
     Route: 065
  5. LORAZEPAM [Suspect]
     Active Substance: LORAZEPAM
     Indication: Persistent depressive disorder
     Dosage: UNK UNK, UNKNOWN FREQ.
     Route: 065
  6. DOXEPIN [Suspect]
     Active Substance: DOXEPIN
     Indication: Persistent depressive disorder
     Dosage: UNK UNK, UNKNOWN FREQ.
     Route: 065
  7. ESTAZOLAM [Suspect]
     Active Substance: ESTAZOLAM
     Indication: Persistent depressive disorder
     Dosage: UNK UNK, UNKNOWN FREQ.
     Route: 065

REACTIONS (3)
  - Death [Fatal]
  - Off label use [Unknown]
  - Product use in unapproved indication [Unknown]
